FAERS Safety Report 15125289 (Version 1)
Quarter: 2018Q3

REPORT INFORMATION
  Report Type: Spontaneous
  Country: US (occurrence: US)
  Receive Date: 20180614
  Receipt Date: 20180614
  Transmission Date: 20181010
  Serious: Yes (Hospitalization)
  Sender: FDA-Public Use
  Company Number: None

PATIENT
  Age: 75 Year
  Sex: Male

DRUGS (19)
  1. ELIQUIS [Concomitant]
     Active Substance: APIXABAN
  2. LASIX [Concomitant]
     Active Substance: FUROSEMIDE
  3. TAMSULOSIN [Concomitant]
     Active Substance: TAMSULOSIN
  4. VALGANCICLOV [Concomitant]
  5. FAMOTIDINE. [Concomitant]
     Active Substance: FAMOTIDINE
  6. TACROLIMUS. [Suspect]
     Active Substance: TACROLIMUS
     Indication: RENAL TRANSPLANT
     Route: 048
     Dates: start: 20180208
  7. BACTRIM [Concomitant]
     Active Substance: SULFAMETHOXAZOLE\TRIMETHOPRIM
  8. FLOMAX [Concomitant]
     Active Substance: TAMSULOSIN HYDROCHLORIDE
  9. MULTAQ [Concomitant]
     Active Substance: DRONEDARONE
  10. PEPCID [Concomitant]
     Active Substance: FAMOTIDINE
  11. ULORIC [Concomitant]
     Active Substance: FEBUXOSTAT
  12. ASPIRIN. [Concomitant]
     Active Substance: ASPIRIN
  13. LEVOFLOXACIN. [Concomitant]
     Active Substance: LEVOFLOXACIN
  14. LOW DOSE ASA [Concomitant]
  15. METOPROLOL TARTRATE. [Concomitant]
     Active Substance: METOPROLOL TARTRATE
  16. MYCOPHENOLATE [Suspect]
     Active Substance: MYCOPHENOLIC ACID
     Indication: RENAL TRANSPLANT
     Route: 048
     Dates: start: 20180208
  17. PREDNISONE. [Concomitant]
     Active Substance: PREDNISONE
  18. FUROSEMIDE. [Concomitant]
     Active Substance: FUROSEMIDE
  19. SMZ?TMP [Concomitant]
     Active Substance: SULFAMETHOXAZOLE\TRIMETHOPRIM

REACTIONS (2)
  - Blood sodium decreased [None]
  - Immune system disorder [None]

NARRATIVE: CASE EVENT DATE: 20180525
